FAERS Safety Report 8365017-3 (Version None)
Quarter: 2012Q2

REPORT INFORMATION
  Report Type: 
  Country: None (occurrence: None)
  Receive Date: 20120516
  Receipt Date: 20090130
  Transmission Date: 20120825
  Serious: Yes (Disabling)
  Sender: FDA-Public Use
  Company Number: JP-GLAXOSMITHKLINE-B0557197A

PATIENT
  Sex: Male
  Weight: 35.4 kg

DRUGS (49)
  1. ARRANON [Suspect]
     Dosage: 650MGM2 PER DAY
     Route: 042
     Dates: start: 20081111, end: 20081115
  2. CYCLOPHOSPHAMIDE [Suspect]
     Indication: NEOPLASM MALIGNANT
     Dosage: 430MG PER DAY
     Route: 042
     Dates: start: 20081111, end: 20081111
  3. HEPARIN SODIUM [Concomitant]
     Dates: start: 20080731, end: 20081001
  4. BROACT [Concomitant]
     Indication: INFECTION PROPHYLAXIS
     Route: 042
     Dates: start: 20080801, end: 20081022
  5. CALCIUM CARBONATE [Concomitant]
     Indication: PROPHYLAXIS
     Route: 042
     Dates: start: 20081112, end: 20081113
  6. ZADITEN [Concomitant]
     Indication: RHINITIS PROPHYLAXIS
     Route: 048
     Dates: start: 20081112, end: 20081118
  7. MIRACLID [Concomitant]
     Indication: PROPHYLAXIS
     Route: 042
     Dates: start: 20081113, end: 20081115
  8. ARRANON [Suspect]
     Dosage: 650MGM2 PER DAY
     Route: 042
     Dates: start: 20080820, end: 20080824
  9. ALLEGRA [Concomitant]
     Indication: PROPHYLAXIS
     Route: 048
     Dates: start: 20080730, end: 20081028
  10. RABEPRAZOLE SODIUM [Concomitant]
     Indication: GASTRITIS PROPHYLAXIS
     Route: 048
     Dates: start: 20080730, end: 20081118
  11. PREDNISOLONE [Concomitant]
     Indication: PROPHYLAXIS
     Route: 048
     Dates: start: 20080730, end: 20080930
  12. CLINDAMYCIN HCL [Concomitant]
     Indication: INFECTION PROPHYLAXIS
     Route: 042
     Dates: start: 20080802, end: 20080803
  13. LISINOPRIL [Concomitant]
     Indication: PROPHYLAXIS
     Route: 048
     Dates: start: 20080820, end: 20081118
  14. ARRANON [Suspect]
     Indication: T-CELL TYPE ACUTE LEUKAEMIA
     Dosage: 650MGM2 PER DAY
     Route: 042
     Dates: start: 20080730, end: 20080803
  15. CYCLOPHOSPHAMIDE [Suspect]
     Dosage: 430MG PER DAY
     Route: 042
     Dates: start: 20081113, end: 20081115
  16. ZOVIRAX [Concomitant]
     Indication: PROPHYLAXIS
     Route: 048
     Dates: start: 20080730, end: 20081118
  17. ZOFRAN [Concomitant]
     Indication: PROPHYLAXIS
     Route: 042
     Dates: start: 20080730, end: 20081115
  18. PENTAMIDINE ISETHIONATE [Concomitant]
     Indication: PROPHYLAXIS
     Dates: start: 20080730, end: 20080821
  19. PENTAZOCINE LACTATE [Concomitant]
     Indication: PROPHYLAXIS
     Route: 042
     Dates: start: 20080731, end: 20081003
  20. MEROPENEM [Concomitant]
     Indication: INFECTION PROPHYLAXIS
     Route: 042
     Dates: start: 20080802, end: 20081115
  21. MINOCYCLINE HYDROCHLORIDE [Concomitant]
     Indication: INFECTION PROPHYLAXIS
     Route: 042
     Dates: start: 20080912, end: 20081115
  22. ARRANON [Suspect]
     Dosage: 650MGM2 PER DAY
     Route: 042
     Dates: start: 20080929, end: 20081003
  23. ETOPOSIDE [Suspect]
     Dosage: 96MG PER DAY
     Route: 042
     Dates: start: 20081113, end: 20081115
  24. CELLCEPT [Concomitant]
     Route: 048
     Dates: start: 20080730, end: 20080808
  25. MAXIPIME [Concomitant]
     Indication: INFECTION PROPHYLAXIS
     Route: 042
     Dates: start: 20080912, end: 20080913
  26. GAMIMUNE N 5% [Concomitant]
     Indication: PROPHYLAXIS
     Route: 042
     Dates: start: 20080913, end: 20081115
  27. SEPAMIT [Concomitant]
     Indication: PROPHYLAXIS
     Route: 048
     Dates: start: 20081022
  28. ARRANON [Suspect]
     Dosage: 650MGM2 PER DAY
     Route: 042
     Dates: start: 20081020, end: 20081024
  29. ETOPOSIDE [Suspect]
     Indication: NEOPLASM MALIGNANT
     Dosage: 96MG PER DAY
     Route: 042
     Dates: start: 20081111, end: 20081111
  30. SOLDEM [Concomitant]
     Route: 042
     Dates: start: 20080730, end: 20081115
  31. DEXAMETHASONE [Concomitant]
     Indication: PROPHYLAXIS
     Route: 031
     Dates: start: 20081022
  32. POTASSIUM CHLORIDE [Concomitant]
     Route: 042
     Dates: start: 20080730, end: 20081020
  33. SOLU-CORTEF [Concomitant]
     Indication: ALLERGY PROPHYLAXIS
     Route: 042
     Dates: start: 20081114, end: 20081114
  34. NEO-MINOPHAGEN-C [Concomitant]
     Indication: PROPHYLAXIS
     Route: 042
     Dates: start: 20080801, end: 20081003
  35. MUCODYNE [Concomitant]
     Indication: RHINITIS PROPHYLAXIS
     Route: 048
     Dates: start: 20081001, end: 20081118
  36. ITRACONAZOLE [Concomitant]
     Indication: INFECTION PROPHYLAXIS
     Route: 048
     Dates: start: 20081022, end: 20081118
  37. POSTERISAN [Concomitant]
     Indication: PROPHYLAXIS
     Route: 061
     Dates: start: 20081022
  38. FUNGUARD [Concomitant]
     Indication: INFECTION PROPHYLAXIS
     Route: 042
     Dates: start: 20081022, end: 20081115
  39. DIAMOX [Concomitant]
     Route: 042
     Dates: start: 20081111, end: 20081115
  40. ARRANON [Suspect]
     Dosage: 650MGM2 PER DAY
     Route: 042
     Dates: start: 20080909, end: 20080913
  41. POTASSIUM CHLORIDE [Concomitant]
     Route: 042
     Dates: start: 20080730, end: 20081115
  42. ALLOPURINOL [Concomitant]
     Indication: PROPHYLAXIS
     Route: 048
     Dates: start: 20080730, end: 20081118
  43. PERIACTIN [Concomitant]
     Indication: RHINITIS PROPHYLAXIS
     Route: 048
     Dates: start: 20080730, end: 20080808
  44. FUROSEMIDE [Concomitant]
     Route: 042
     Dates: start: 20080730, end: 20081115
  45. ALBUMIN (HUMAN) [Concomitant]
     Indication: PROPHYLAXIS
     Route: 042
     Dates: start: 20080801, end: 20081113
  46. FOSMICIN-S [Concomitant]
     Indication: INFECTION PROPHYLAXIS
     Route: 042
     Dates: start: 20080822, end: 20080822
  47. ATARAX [Concomitant]
     Route: 042
     Dates: start: 20080929, end: 20081115
  48. PROGRAF [Concomitant]
     Indication: PROPHYLAXIS
     Route: 048
     Dates: start: 20080929, end: 20081118
  49. ACETAMINOPHEN [Concomitant]
     Indication: PROPHYLAXIS
     Route: 048
     Dates: start: 20081022

REACTIONS (2)
  - NERVOUS SYSTEM DISORDER [None]
  - PAIN IN EXTREMITY [None]
